FAERS Safety Report 24582279 (Version 2)
Quarter: 2024Q4

REPORT INFORMATION
  Report Type: Report from Study
  Country: US (occurrence: US)
  Receive Date: 20241105
  Receipt Date: 20241117
  Transmission Date: 20250115
  Serious: Yes (Other)
  Sender: ALEXION PHARMACEUTICALS
  Company Number: US-ALXN-202410USA023249US

PATIENT

DRUGS (1)
  1. STRENSIQ [Suspect]
     Active Substance: ASFOTASE ALFA
     Dosage: UNK
     Route: 065

REACTIONS (19)
  - Suicidal ideation [Unknown]
  - Pain in extremity [Unknown]
  - Tooth fracture [Unknown]
  - Headache [Not Recovered/Not Resolved]
  - Seizure [Unknown]
  - Pain [Unknown]
  - Protein urine present [Unknown]
  - Urine ketone body [Unknown]
  - Bilirubin urine [Unknown]
  - Initial insomnia [Unknown]
  - Poor quality sleep [Unknown]
  - Hypermobility syndrome [Unknown]
  - Injection site erythema [Unknown]
  - Skin striae [Unknown]
  - Blood sodium decreased [Unknown]
  - Blood urea decreased [Unknown]
  - Congenital eyelid malformation [Unknown]
  - Hair growth abnormal [Unknown]
  - Tooth agenesis [Unknown]
